FAERS Safety Report 11799199 (Version 3)
Quarter: 2015Q4

REPORT INFORMATION
  Report Type: Spontaneous
  Country: US (occurrence: US)
  Receive Date: 20151203
  Receipt Date: 20151230
  Transmission Date: 20160305
  Serious: Yes (Death, Hospitalization)
  Sender: FDA-Public Use
  Company Number: US-009507513-1505USA011019

PATIENT
  Age: 81 Year
  Sex: Female

DRUGS (4)
  1. CUBICIN [Suspect]
     Active Substance: DAPTOMYCIN
     Indication: STAPHYLOCOCCAL BACTERAEMIA
     Dosage: 10 MG/KG, UNK, (FOLLOWING 1ST AND 2ND DIALYSIS SESSION OF THE WEEK)
     Route: 065
  2. CEFTAROLINE FOSAMIL/CEFTAROLINE FOSAMIL ACETATE [Concomitant]
     Indication: STAPHYLOCOCCAL BACTERAEMIA
     Dosage: 500 MG (LOADING DOSE), SINGLE
     Route: 042
  3. CUBICIN [Suspect]
     Active Substance: DAPTOMYCIN
     Indication: ENDOCARDITIS
     Dosage: 12 MG/KG, UNK, (FOLLOWING 3RD DIALYSIS SESSION OF THE WEEK)
     Route: 065
  4. CEFTAROLINE FOSAMIL/CEFTAROLINE FOSAMIL ACETATE [Concomitant]
     Indication: ENDOCARDITIS
     Dosage: 400 MG, BID
     Route: 042

REACTIONS (5)
  - Product use issue [Unknown]
  - Atrial fibrillation [Unknown]
  - Antimicrobial susceptibility test resistant [Unknown]
  - Mitral valve incompetence [Unknown]
  - Cardiac failure [Fatal]
